FAERS Safety Report 6803594-1 (Version None)
Quarter: 2010Q2

REPORT INFORMATION
  Report Type: 
  Country: None (occurrence: None)
  Receive Date: 20100628
  Receipt Date: 20100621
  Transmission Date: 20101027
  Serious: Yes (Hospitalization)
  Sender: FDA-Public Use
  Company Number: US-JNJFOC-20100606909

PATIENT
  Sex: Female
  Weight: 92.99 kg

DRUGS (2)
  1. DURAGESIC-100 [Suspect]
     Indication: PAIN
     Route: 062
  2. PAXIL CR [Concomitant]
     Indication: ANXIETY
     Route: 048

REACTIONS (1)
  - PNEUMONIA [None]
